FAERS Safety Report 5207651-5 (Version None)
Quarter: 2007Q1

REPORT INFORMATION
  Report Type: 
  Country: None (occurrence: None)
  Receive Date: 20070112
  Receipt Date: 20070108
  Transmission Date: 20070707
  Serious: Yes (Hospitalization, Other)
  Sender: FDA-Public Use
  Company Number: DE-PFIZER INC-2006150594

PATIENT
  Sex: Male

DRUGS (5)
  1. ATORVASTATIN CALCIUM [Suspect]
     Dosage: DAILY DOSE:20MG
     Route: 048
     Dates: start: 20020101, end: 20060101
  2. COTRIM [Suspect]
     Indication: INFECTION
     Dates: start: 20061101
  3. MICARDIS [Concomitant]
     Route: 048
  4. DIGIMERCK [Concomitant]
     Route: 048
  5. CORDARONE [Concomitant]
     Route: 048

REACTIONS (3)
  - ERYSIPELAS [None]
  - GENITAL ULCERATION [None]
  - RHABDOMYOLYSIS [None]
